FAERS Safety Report 16891037 (Version 4)
Quarter: 2019Q4

REPORT INFORMATION
  Report Type: Report from Study
  Country: AT (occurrence: AT)
  Receive Date: 20191007
  Receipt Date: 20191205
  Transmission Date: 20200122
  Serious: Yes (Hospitalization, Other)
  Sender: FDA-Public Use
  Company Number: AT-MYLANLABS-2019M1091789

PATIENT
  Age: 53 Year
  Sex: Female
  Weight: 53 kg

DRUGS (35)
  1. ZOFRAN [Suspect]
     Active Substance: ONDANSETRON HYDROCHLORIDE
     Indication: NAUSEA
     Dosage: UNK
     Route: 048
     Dates: start: 20190409, end: 20190409
  2. HYDAL [Suspect]
     Active Substance: HYDROMORPHONE HYDROCHLORIDE
     Dosage: 2 MILLIGRAM
     Route: 048
     Dates: start: 20190327, end: 20190409
  3. HYDAL [Suspect]
     Active Substance: HYDROMORPHONE HYDROCHLORIDE
     Dosage: 2 MILLIGRAM, QD
     Route: 048
     Dates: start: 20190425
  4. CALCIDURAN [Suspect]
     Active Substance: ASCORBIC ACID\CALCIUM PHOSPHATE\CHOLECALCIFEROL\CITRIC ACID MONOHYDRATE
     Indication: PRODUCT USED FOR UNKNOWN INDICATION
     Dosage: 800 IE (VITAMIN D3)
     Route: 048
     Dates: start: 201905, end: 201905
  5. VERTIROSAN                         /00019501/ [Suspect]
     Active Substance: DIMENHYDRINATE
     Indication: NAUSEA
     Dosage: 150 MILLIGRAM, Q3D
     Route: 048
     Dates: end: 20190424
  6. PRAXITEN [Suspect]
     Active Substance: OXAZEPAM
     Dosage: 0.5 TABLET IF NEEDED
     Route: 048
  7. DRONABINOL. [Suspect]
     Active Substance: DRONABINOL
     Dosage: 3-3-4, DROPS
     Route: 048
     Dates: start: 20190410, end: 20190410
  8. PASPERTIN (METOCLOPRAMIDE HYDROCHLORIDE) [Suspect]
     Active Substance: METOCLOPRAMIDE HYDROCHLORIDE
     Indication: ANXIETY
     Dosage: 20 MILLIGRAM, QD
     Route: 048
     Dates: start: 20190425, end: 20190502
  9. PASPERTIN (METOCLOPRAMIDE HYDROCHLORIDE) [Suspect]
     Active Substance: METOCLOPRAMIDE HYDROCHLORIDE
     Dosage: 00-1/2
     Route: 048
     Dates: start: 20190410, end: 20190417
  10. GABAPENTIN. [Suspect]
     Active Substance: GABAPENTIN
     Indication: PAIN
     Dosage: UNK
     Route: 048
  11. ZYPREXA [Suspect]
     Active Substance: OLANZAPINE
     Indication: MANIA
     Dosage: UNK
     Route: 048
  12. COBIMETINIB. [Suspect]
     Active Substance: COBIMETINIB
     Dosage: 20 MILLIGRAM, 3-0-0
     Route: 048
     Dates: start: 20190407, end: 20190423
  13. COBIMETINIB. [Suspect]
     Active Substance: COBIMETINIB
     Dosage: 3-0-0
     Route: 048
     Dates: start: 20190425, end: 20190526
  14. DRONABINOL. [Suspect]
     Active Substance: DRONABINOL
     Indication: PAIN
     Dosage: DROPS
     Route: 048
     Dates: start: 20190409, end: 20190409
  15. MOLAXOLE [Suspect]
     Active Substance: POLYETHYLENE GLYCOL 3350\POTASSIUM CHLORIDE\SODIUM BICARBONATE\SODIUM CHLORIDE
     Indication: CONSTIPATION
     Dosage: UNK
     Route: 048
  16. PASPERTIN (METOCLOPRAMIDE HYDROCHLORIDE) [Suspect]
     Active Substance: METOCLOPRAMIDE HYDROCHLORIDE
     Indication: NAUSEA
     Dosage: 10 MILLIGRAM
     Route: 048
     Dates: end: 20190409
  17. PASPERTIN (METOCLOPRAMIDE HYDROCHLORIDE) [Suspect]
     Active Substance: METOCLOPRAMIDE HYDROCHLORIDE
     Indication: VOMITING
     Dosage: 30 MILLIGRAM, QD
     Route: 048
     Dates: start: 20190410, end: 20190424
  18. HYDAL [Suspect]
     Active Substance: HYDROMORPHONE HYDROCHLORIDE
     Indication: PAIN
     Dosage: WHEN NEEDED, UP TO 6/DAY
     Route: 048
     Dates: end: 20190424
  19. DUROTIV [Suspect]
     Active Substance: ESOMEPRAZOLE
     Indication: PRODUCT USED FOR UNKNOWN INDICATION
     Dosage: UNK
     Route: 048
  20. ZYPREXA [Suspect]
     Active Substance: OLANZAPINE
     Dosage: 5 MILLIGRAM, QD
     Route: 048
     Dates: start: 20190410, end: 20190424
  21. PRAXITEN [Suspect]
     Active Substance: OXAZEPAM
     Indication: INSOMNIA
     Dosage: 1.05 WHEN NEEDED
     Route: 048
     Dates: start: 20190410, end: 20190417
  22. FORTECORTIN                        /00016001/ [Suspect]
     Active Substance: DEXAMETHASONE
     Dosage: 8 MILLIGRAM, QD
     Route: 048
     Dates: start: 20190408, end: 20190425
  23. GABAPENTIN. [Suspect]
     Active Substance: GABAPENTIN
     Dosage: 900 MILLIGRAM, QD
     Route: 048
     Dates: start: 20190501
  24. VEMURAFENIB. [Suspect]
     Active Substance: VEMURAFENIB
     Indication: PRODUCT USED FOR UNKNOWN INDICATION
     Dosage: 240 MILLIGRAM, 4-0-4
     Route: 048
     Dates: start: 20190327, end: 2019
  25. VEMURAFENIB. [Suspect]
     Active Substance: VEMURAFENIB
     Dosage: 3-0-3
     Route: 048
     Dates: start: 20190425, end: 20190526
  26. DUROTIV [Suspect]
     Active Substance: ESOMEPRAZOLE
     Dosage: 40 MILLIGRAM, QD
     Route: 048
     Dates: start: 20190410
  27. VEMURAFENIB. [Suspect]
     Active Substance: VEMURAFENIB
     Dosage: 240 MILLIGRAM, 4-0-4
     Route: 048
     Dates: start: 20190407, end: 20190423
  28. COBIMETINIB. [Suspect]
     Active Substance: COBIMETINIB
     Dosage: 2-0-0
     Route: 048
     Dates: start: 20190607
  29. PRAXITEN [Suspect]
     Active Substance: OXAZEPAM
     Indication: ANXIETY
     Dosage: 15 MILLIGRAM, QD
     Route: 048
     Dates: start: 20190410, end: 20190417
  30. GABAPENTIN. [Suspect]
     Active Substance: GABAPENTIN
     Dosage: 300 MILLIGRAM, QD
     Route: 048
     Dates: start: 20190502
  31. FORTECORTIN                        /00016001/ [Suspect]
     Active Substance: DEXAMETHASONE
     Dosage: 4 MILLIGRAM, QD
     Route: 048
     Dates: start: 20190503, end: 20190504
  32. HYDAL [Suspect]
     Active Substance: HYDROMORPHONE HYDROCHLORIDE
     Dosage: 6 MILLIGRAM, QD
     Route: 048
     Dates: start: 20190410, end: 20190424
  33. VEMURAFENIB. [Suspect]
     Active Substance: VEMURAFENIB
     Dosage: 240 MILLIGRAM
     Route: 048
     Dates: start: 20190607
  34. COBIMETINIB. [Suspect]
     Active Substance: COBIMETINIB
     Indication: METASTATIC MALIGNANT MELANOMA
     Dosage: 20 MILLIGRAM, 3-0-0
     Route: 048
     Dates: start: 20190327, end: 2019
  35. FORTECORTIN                        /00016001/ [Suspect]
     Active Substance: DEXAMETHASONE
     Indication: PROPHYLAXIS
     Dosage: 4 MILLIGRAM, QD
     Route: 048
     Dates: start: 20190426, end: 20190502

REACTIONS (29)
  - Discomfort [Recovered/Resolved]
  - Spinal pain [Recovered/Resolved]
  - Renal function test abnormal [Recovering/Resolving]
  - Headache [Recovered/Resolved]
  - Skin discolouration [Not Recovered/Not Resolved]
  - Hypertonia [Recovering/Resolving]
  - Hyperlipidaemia [Recovering/Resolving]
  - Abdominal pain upper [Recovered/Resolved]
  - Vomiting [Recovered/Resolved]
  - Decreased appetite [Recovered/Resolved]
  - Laboratory test abnormal [Recovering/Resolving]
  - Fatigue [Recovered/Resolved]
  - Oedema [Recovered/Resolved]
  - Anxiety [Recovered/Resolved]
  - Hypokalaemia [Recovered/Resolved]
  - Rash [Recovered/Resolved]
  - Constipation [Recovered/Resolved]
  - Vertigo [Recovered/Resolved]
  - Diarrhoea [Recovered/Resolved]
  - Liver function test abnormal [Recovering/Resolving]
  - Nodule [Unknown]
  - Feeling hot [Recovered/Resolved]
  - Flatulence [Recovered/Resolved]
  - Nausea [Recovered/Resolved]
  - Defaecation disorder [Recovered/Resolved]
  - General physical health deterioration [Recovered/Resolved]
  - Dry mouth [Recovered/Resolved]
  - Hypertensive crisis [Recovered/Resolved]
  - Alopecia [Recovering/Resolving]

NARRATIVE: CASE EVENT DATE: 20190327
